FAERS Safety Report 9343927 (Version 1)
Quarter: 2013Q2

REPORT INFORMATION
  Report Type: Spontaneous
  Country: US (occurrence: US)
  Receive Date: 20130612
  Receipt Date: 20130612
  Transmission Date: 20140414
  Serious: Yes (Other)
  Sender: FDA-Public Use
  Company Number: US-SANOFI-AVENTIS-2013SA058702

PATIENT
  Sex: 0

DRUGS (1)
  1. LANTUS [Suspect]

REACTIONS (4)
  - Monoparesis [Unknown]
  - Somnolence [Unknown]
  - Dehydration [Unknown]
  - Vomiting [Unknown]
